FAERS Safety Report 17206192 (Version 1)
Quarter: 2020Q1

REPORT INFORMATION
  Report Type: Spontaneous
  Country: US (occurrence: US)
  Receive Date: 20191226
  Receipt Date: 20191226
  Transmission Date: 20200409
  Serious: No
  Sender: FDA-Public Use
  Company Number: None

PATIENT
  Age: 53 Year
  Sex: Female

DRUGS (2)
  1. MELOXICAM 15MG TABS [Concomitant]
     Dates: start: 20181216
  2. XELJANZ XR [Suspect]
     Active Substance: TOFACITINIB CITRATE
     Indication: RHEUMATOID ARTHRITIS
     Route: 048
     Dates: start: 20181126

REACTIONS (2)
  - Product dose omission [None]
  - Nasopharyngitis [None]

NARRATIVE: CASE EVENT DATE: 20191224
